FAERS Safety Report 8815969 (Version 1)
Quarter: 2012Q4

REPORT INFORMATION
  Report Type: 
  Country: US (occurrence: US)
  Receive Date: 20120928
  Receipt Date: 20120928
  Transmission Date: 20130627
  Serious: Yes (Death)
  Sender: FDA-Public Use
  Company Number: US-ROCHE-1127099

PATIENT
  Sex: Male

DRUGS (8)
  1. AVASTIN [Suspect]
     Indication: RENAL CANCER
     Route: 065
  2. AVASTIN [Suspect]
     Indication: PANCREATIC CARCINOMA
  3. AVASTIN [Suspect]
     Indication: MALIGNANT URINARY TRACT NEOPLASM
  4. XELODA [Suspect]
     Indication: PRODUCT USED FOR UNKNOWN INDICATION
     Route: 065
  5. IL-2 [Suspect]
     Indication: PRODUCT USED FOR UNKNOWN INDICATION
  6. GEMZAR [Suspect]
     Indication: PRODUCT USED FOR UNKNOWN INDICATION
  7. ZOMETA [Suspect]
     Indication: METASTASES TO BONE
  8. INTERFERON ALFA [Suspect]
     Indication: PRODUCT USED FOR UNKNOWN INDICATION

REACTIONS (1)
  - Death [Fatal]
